FAERS Safety Report 5971444-1 (Version None)
Quarter: 2008Q4

REPORT INFORMATION
  Report Type: 
  Country: None (occurrence: None)
  Receive Date: 20081201
  Receipt Date: 20081118
  Transmission Date: 20090506
  Serious: Yes (Hospitalization, Other)
  Sender: FDA-Public Use
  Company Number: GB-JNJFOC-20081104730

PATIENT
  Sex: Male
  Weight: 99 kg

DRUGS (11)
  1. REMICADE [Suspect]
     Indication: RHEUMATOID ARTHRITIS
     Route: 042
  2. METHOTREXATE [Concomitant]
  3. PREDNISOLONE [Concomitant]
  4. BENDROFLUAZIDE [Concomitant]
  5. DIGOXIN [Concomitant]
  6. FOLIC ACID [Concomitant]
  7. IBUPROFEN TABLETS [Concomitant]
  8. OMEPRAZOLE [Concomitant]
  9. SENNA [Concomitant]
  10. TEMAZEPAM [Concomitant]
  11. TRANSTEC [Concomitant]

REACTIONS (2)
  - FALL [None]
  - URINARY TRACT INFECTION [None]
